FAERS Safety Report 13031995 (Version 2)
Quarter: 2017Q1

REPORT INFORMATION
  Report Type: Spontaneous
  Country: US (occurrence: US)
  Receive Date: 20161215
  Receipt Date: 20170123
  Transmission Date: 20170428
  Serious: No
  Sender: FDA-Public Use
  Company Number: US-PFIZER INC-2016575325

PATIENT
  Age: 73 Year
  Sex: Male
  Weight: 91 kg

DRUGS (1)
  1. VIAGRA [Suspect]
     Active Substance: SILDENAFIL CITRATE
     Dosage: 100 MG, UNK

REACTIONS (3)
  - Suspected counterfeit product [Unknown]
  - Intentional product use issue [Unknown]
  - Drug ineffective [Unknown]
